FAERS Safety Report 8125498-7 (Version None)
Quarter: 2012Q1

REPORT INFORMATION
  Report Type: 
  Country: None (occurrence: None)
  Receive Date: 20120209
  Receipt Date: 20120203
  Transmission Date: 20120608
  Serious: Yes (Hospitalization, Other)
  Sender: FDA-Public Use
  Company Number: US-PFIZER INC-2011117163

PATIENT
  Sex: Male

DRUGS (8)
  1. CHANTIX [Suspect]
     Indication: SMOKING CESSATION THERAPY
     Dosage: VARENICLINE STARTING MONTH PACKS 0.5MG AND VARENICLINE 1MG CONTINUING PACKS
     Dates: start: 20070301, end: 20090801
  2. TRAZODONE [Concomitant]
     Indication: SLEEP DISORDER
     Dosage: UNK
     Dates: start: 20050101
  3. OXYCODONE [Concomitant]
     Indication: PAIN MANAGEMENT
     Dosage: 10 MG, UNK
     Dates: start: 20050101, end: 20110101
  4. OXYCONTIN [Concomitant]
     Indication: PAIN MANAGEMENT
     Dosage: 80 MG, UNK
     Dates: start: 20050101, end: 20110101
  5. CYMBALTA [Concomitant]
     Indication: DEPRESSION
     Dosage: UNK
     Dates: start: 20050101, end: 20110101
  6. TIZANIDINE [Concomitant]
     Indication: MUSCLE RELAXANT THERAPY
     Dosage: UNK
     Dates: start: 20020101
  7. CLORAZEPATE DIPOTASSIUM [Concomitant]
     Indication: ANXIETY
     Dosage: UNK
     Dates: start: 20030101, end: 20110101
  8. ONDANSETRON HCL [Concomitant]
     Indication: NAUSEA
     Dosage: UNK
     Dates: start: 20050101, end: 20110701

REACTIONS (4)
  - ANXIETY [None]
  - SUICIDE ATTEMPT [None]
  - INTENTIONAL OVERDOSE [None]
  - DEPRESSION [None]
